FAERS Safety Report 7885629-0 (Version None)
Quarter: 2011Q4

REPORT INFORMATION
  Report Type: 
  Country: None (occurrence: None)
  Receive Date: 20111102
  Receipt Date: 20110627
  Transmission Date: 20120403
  Serious: No
  Sender: FDA-Public Use
  Company Number: US-AMGEN-USASP2011032671

PATIENT
  Sex: Female

DRUGS (4)
  1. ENBREL [Suspect]
     Indication: PSORIASIS
  2. ENBREL [Suspect]
     Indication: RHEUMATOID ARTHRITIS
  3. ENBREL [Suspect]
     Indication: PSORIATIC ARTHROPATHY
  4. ENBREL [Suspect]
     Indication: OSTEOARTHRITIS

REACTIONS (2)
  - DRUG INEFFECTIVE [None]
  - BLISTER [None]
